FAERS Safety Report 5119941-5 (Version None)
Quarter: 2006Q3

REPORT INFORMATION
  Report Type: 
  Country: None (occurrence: None)
  Receive Date: 20060928
  Receipt Date: 20060926
  Transmission Date: 20061208
  Serious: Yes (Death)
  Sender: FDA-Public Use
  Company Number: THQ2006A00518

PATIENT
  Age: 60 Year
  Sex: Male

DRUGS (13)
  1. ACTOS [Suspect]
     Dosage: 30 MG
     Dates: start: 20060101
  2. LANTUS [Concomitant]
  3. ACTRAPID HUMAN (INSULIN HUMAN) [Concomitant]
  4. PERINDOPRIL ERBUMINE [Concomitant]
  5. ZOCOR [Concomitant]
  6. ISOSORBIDE MONONITRATE [Concomitant]
  7. NEWACE (FOSINOPRIL SODIUM) [Concomitant]
  8. BUMETANIDE [Concomitant]
  9. ACETOSAL (ACETYLSALICYLIC ACID) [Concomitant]
  10. ISORDIL [Concomitant]
  11. GLUCOPHAGE [Concomitant]
  12. HYDROCOBAMINE (HYDROXOCOBALAMIN HYDROCHLORIDE) [Concomitant]
  13. ANATENSOL (FLUPHENAZINE) [Concomitant]

REACTIONS (3)
  - CARDIAC DEATH [None]
  - CARDIAC FAILURE [None]
  - VENTRICULAR FIBRILLATION [None]
